FAERS Safety Report 7365182-0 (Version None)
Quarter: 2011Q1

REPORT INFORMATION
  Report Type: 
  Country: None (occurrence: None)
  Receive Date: 20110321
  Receipt Date: 20110314
  Transmission Date: 20110831
  Serious: Yes (Life-Threatening, Hospitalization)
  Sender: FDA-Public Use
  Company Number: PHHO2011FR01386

PATIENT
  Sex: Male
  Weight: 68 kg

DRUGS (25)
  1. CERTICAN [Suspect]
     Indication: RENAL TRANSPLANT
     Dosage: 3 MG, PER DAY
     Route: 048
     Dates: start: 20110202, end: 20110209
  2. EPREX [Concomitant]
  3. NORSET [Concomitant]
  4. SODIUM BICARBONATE [Concomitant]
  5. POTASSIUM CHLORIDE [Concomitant]
  6. ESOMEPRAZOLE MAGNESIUM [Suspect]
     Dosage: 40 MG, PER DAY
     Route: 048
     Dates: start: 20110116, end: 20110201
  7. AMLODIPINE BESYLATE [Concomitant]
  8. ECONAZOLE NITRATE [Concomitant]
  9. NEORAL [Suspect]
     Dosage: 400 MG, PER DAY
     Route: 048
     Dates: start: 20110210
  10. ROVALCYTE [Suspect]
     Dosage: 250 MG, 9QD
     Route: 048
     Dates: start: 20110129, end: 20110201
  11. CORTANCYL [Suspect]
     Indication: RENAL TRANSPLANT
     Dosage: 40 MG, PER DAY
     Route: 048
     Dates: start: 20110116
  12. BACTRIM [Suspect]
     Dosage: 400 MG, PER DAY
     Route: 048
     Dates: start: 20110124, end: 20110201
  13. ADANCOR [Concomitant]
  14. ZANTAC [Suspect]
     Dosage: 150 MG, PER DAY
     Route: 048
     Dates: start: 20110202
  15. LASIX [Concomitant]
  16. INSULATARD [Concomitant]
  17. ALUMINUM HYDROXIDE AND MAGNESIUM TRISILICATE [Concomitant]
  18. NEORAL [Suspect]
     Indication: RENAL TRANSPLANT
     Dosage: 400 MG, PER DAY
     Route: 048
     Dates: start: 20110117, end: 20110201
  19. CELLCEPT [Suspect]
     Indication: RENAL TRANSPLANT
     Dosage: 2 G, PER DAY
     Route: 048
     Dates: start: 20110115, end: 20110209
  20. SOLU-MEDROL [Concomitant]
     Indication: RENAL TRANSPLANT
     Dosage: 20 MG/ DAY
     Dates: start: 20110115, end: 20110115
  21. CALCIDIA [Concomitant]
  22. IMODIUM [Concomitant]
  23. SIMULECT [Concomitant]
     Indication: RENAL TRANSPLANT
     Dosage: 500 MG/ DAY
     Dates: start: 20110115, end: 20110115
  24. NITRODERM [Concomitant]
  25. ESOMEPRAZOLE [Concomitant]

REACTIONS (12)
  - RENAL IMPAIRMENT [None]
  - WOUND DEHISCENCE [None]
  - DIARRHOEA [None]
  - RENAL VESSEL DISORDER [None]
  - ANASTOMOTIC HAEMORRHAGE [None]
  - LEUKOPENIA [None]
  - PNEUMONIA ESCHERICHIA [None]
  - RENAL TUBULAR NECROSIS [None]
  - COMPLICATIONS OF TRANSPLANTED KIDNEY [None]
  - ESCHERICHIA SEPSIS [None]
  - THROMBOCYTOPENIA [None]
  - RED BLOOD CELL COUNT DECREASED [None]
